FAERS Safety Report 7068345 (Version 2)
Quarter: 2013Q4

REPORT INFORMATION
  Report Type: Spontaneous
  Country: US (occurrence: None)
  Receive Date: 20090724
  Receipt Date: 20131108
  Transmission Date: 20140711
  Serious: Yes (Other)
  Sender: FDA-Public Use
  Company Number: 2009S1005461

PATIENT
  Age: 50 Year
  Sex: Male
  Weight: 147.42 kg

DRUGS (2)
  1. SODIUM PHOSPHATE, DIBASIC\SODIUM PHOSPHATE, MONOBASIC, ANHYDROUS [Suspect]
     Indication: COLONOSCOPY
     Dosage: 90ML, 2 IN 24 HOURS, ORAL
     Route: 048
     Dates: start: 20040308, end: 20040308
  2. BISACODYL [Suspect]
     Indication: COLONOSCOPY
     Dosage: 2 TABLETS, TAKE AT 6:00PM TWO
     Dates: start: 20040307, end: 20040307

REACTIONS (2)
  - Dialysis [None]
  - Renal failure [None]
